FAERS Safety Report 5845821-3 (Version None)
Quarter: 2008Q3

REPORT INFORMATION
  Report Type: 
  Country: None (occurrence: None)
  Receive Date: 20080814
  Receipt Date: 20080807
  Transmission Date: 20090109
  Serious: Yes (Life-Threatening, Hospitalization)
  Sender: FDA-Public Use
  Company Number: JP-ABBOTT-08P-087-0469506-00

PATIENT
  Age: 72 Year
  Sex: Female
  Weight: 80 kg

DRUGS (6)
  1. CLARITH TABLETS [Suspect]
     Indication: BRONCHITIS
     Route: 048
     Dates: start: 20080424, end: 20080428
  2. CARBOCISTEINE [Concomitant]
     Indication: BRONCHITIS
     Route: 048
     Dates: start: 20080424, end: 20080428
  3. CLOPERASTINE HYDROCHLORIDE [Concomitant]
     Indication: BRONCHITIS
     Route: 048
     Dates: start: 20080424, end: 20080428
  4. TULOBUTEROL HYDROCHLORIDE [Concomitant]
     Indication: BRONCHITIS
     Route: 062
     Dates: start: 20080424, end: 20080428
  5. BAYROTESIN [Concomitant]
     Indication: ESSENTIAL HYPERTENSION
     Route: 048
  6. CANDESARTAN CILEXETIL [Concomitant]
     Indication: ESSENTIAL HYPERTENSION
     Route: 048

REACTIONS (4)
  - ANAEMIA [None]
  - DECREASED APPETITE [None]
  - MYALGIA [None]
  - RHABDOMYOLYSIS [None]
